FAERS Safety Report 16106101 (Version 1)
Quarter: 2019Q1

REPORT INFORMATION
  Report Type: Report from Study
  Country: US (occurrence: US)
  Receive Date: 20190322
  Receipt Date: 20190322
  Transmission Date: 20190418
  Serious: Yes (Hospitalization, Other)
  Sender: FDA-Public Use
  Company Number: US-GILEAD-2019-0392491

PATIENT
  Age: 55 Year
  Sex: Female

DRUGS (4)
  1. BENZONATATE. [Concomitant]
     Active Substance: BENZONATATE
  2. TADALAFIL. [Concomitant]
     Active Substance: TADALAFIL
  3. AMOXCLAV [AMOXICILLIN;CLAVULANIC ACID] [Concomitant]
  4. AMBRISENTAN [Suspect]
     Active Substance: AMBRISENTAN
     Indication: PULMONARY ARTERIAL HYPERTENSION
     Dosage: 5 MG, QD
     Route: 065
     Dates: start: 20180920

REACTIONS (8)
  - Malaise [Not Recovered/Not Resolved]
  - Swelling [Not Recovered/Not Resolved]
  - Intentional dose omission [Recovered/Resolved]
  - Cardiac pacemaker insertion [Unknown]
  - Intentional dose omission [Recovered/Resolved]
  - Traumatic lung injury [Unknown]
  - Memory impairment [Unknown]
  - Haemoptysis [Unknown]

NARRATIVE: CASE EVENT DATE: 20190215
